FAERS Safety Report 25990140 (Version 1)
Quarter: 2025Q4

REPORT INFORMATION
  Report Type: Spontaneous
  Country: AU (occurrence: AU)
  Receive Date: 20251103
  Receipt Date: 20251103
  Transmission Date: 20260117
  Serious: Yes (Other)
  Sender: ROCHE
  Company Number: AU-ROCHE-10000420404

PATIENT

DRUGS (1)
  1. EMICIZUMAB [Suspect]
     Active Substance: EMICIZUMAB
     Indication: Factor VIII deficiency
     Route: 065

REACTIONS (4)
  - Joint destruction [Unknown]
  - Intentional product use issue [Unknown]
  - Off label use [Unknown]
  - Haematoma muscle [Unknown]

NARRATIVE: CASE EVENT DATE: 20230501
